FAERS Safety Report 13737908 (Version 1)
Quarter: 2017Q3

REPORT INFORMATION
  Report Type: Spontaneous
  Country: US (occurrence: US)
  Receive Date: 20170710
  Receipt Date: 20170710
  Transmission Date: 20171127
  Serious: Yes (Other)
  Sender: FDA-Public Use
  Company Number: US-SAOL THERAPEUTICS-2016SAO00802

PATIENT

DRUGS (2)
  1. BACLOFEN. [Suspect]
     Active Substance: BACLOFEN
     Indication: MUSCLE SPASTICITY
     Dosage: 380 ?G, \DAY
     Route: 037
     Dates: end: 20160928
  2. BACLOFEN. [Suspect]
     Active Substance: BACLOFEN
     Dosage: 200 ? \DAY
     Dates: start: 20160928

REACTIONS (4)
  - Somnolence [Unknown]
  - Clonus [Recovered/Resolved]
  - Drug administration error [Recovered/Resolved]
  - Complication associated with device [Recovered/Resolved]

NARRATIVE: CASE EVENT DATE: 2016
